FAERS Safety Report 4899430-3 (Version None)
Quarter: 2006Q1

REPORT INFORMATION
  Report Type: 
  Country: None (occurrence: None)
  Receive Date: 20060131
  Receipt Date: 20060113
  Transmission Date: 20060701
  Serious: Yes (Hospitalization)
  Sender: FDA-Public Use
  Company Number: DSA_27660_2006

PATIENT
  Age: 77 Year
  Sex: Female

DRUGS (3)
  1. DILTIAZEM HCL [Suspect]
     Dosage: 300 MG PO
     Route: 048
     Dates: start: 20050104, end: 20050114
  2. TOPALGIC [Concomitant]
  3. CYCLO 3 [Concomitant]

REACTIONS (4)
  - DERMATITIS EXFOLIATIVE [None]
  - HYPERTHERMIA [None]
  - SKIN TEST POSITIVE [None]
  - TOXIC SKIN ERUPTION [None]
